FAERS Safety Report 14099713 (Version 6)
Quarter: 2018Q1

REPORT INFORMATION
  Report Type: Spontaneous
  Country: FR (occurrence: FR)
  Receive Date: 20171017
  Receipt Date: 20180201
  Transmission Date: 20180508
  Serious: Yes (Death)
  Sender: FDA-Public Use
  Company Number: FR-PFIZER INC-2017439725

PATIENT
  Age: 85 Year
  Sex: Female
  Weight: 100 kg

DRUGS (7)
  1. PIPERACILLINE PANPHARMA [Suspect]
     Active Substance: PIPERACILLIN SODIUM
     Indication: DEVICE RELATED INFECTION
     Dosage: 4 G, 2X/DAY
     Route: 041
     Dates: start: 20170804, end: 20170821
  2. DALACINE [Suspect]
     Active Substance: CLINDAMYCIN HYDROCHLORIDE
     Indication: DEVICE RELATED INFECTION
     Dosage: 600 MG, 3X/DAY
     Route: 048
     Dates: start: 20170728, end: 20170821
  3. LANSOPRAZOLE. [Suspect]
     Active Substance: LANSOPRAZOLE
     Indication: GASTROOESOPHAGEAL REFLUX DISEASE
     Dosage: 30 MG, DAILY
     Route: 048
     Dates: end: 20170821
  4. CRESTOR [Concomitant]
     Active Substance: ROSUVASTATIN CALCIUM
     Dosage: UNK
  5. CEFEPIME [Suspect]
     Active Substance: CEFEPIME HYDROCHLORIDE
     Indication: DEVICE RELATED INFECTION
     Dosage: 1 G, 3X/DAY
     Route: 041
     Dates: start: 20170724, end: 20170731
  6. RIFADINE [Suspect]
     Active Substance: RIFAMPIN
     Indication: DEVICE RELATED INFECTION
     Dosage: 900 MG, UNK
     Route: 048
     Dates: start: 20170728, end: 20170821
  7. VALSARTAN. [Concomitant]
     Active Substance: VALSARTAN
     Dosage: UNK

REACTIONS (3)
  - Eosinophilia [Fatal]
  - Pruritus [Fatal]
  - Rash [Fatal]

NARRATIVE: CASE EVENT DATE: 20170817
